FAERS Safety Report 10556663 (Version 2)
Quarter: 2015Q1

REPORT INFORMATION
  Report Type: Spontaneous
  Country: US (occurrence: US)
  Receive Date: 20141031
  Receipt Date: 20150311
  Transmission Date: 20150720
  Serious: Yes (Hospitalization, Other)
  Sender: FDA-Public Use
  Company Number: US-PFIZER INC-2014300125

PATIENT
  Age: 49 Year
  Sex: Female
  Weight: 59 kg

DRUGS (14)
  1. PRISTIQ EXTENDED RELEASE [Suspect]
     Active Substance: DESVENLAFAXINE SUCCINATE
     Indication: ANXIETY
     Dosage: 100 MG, DAILY (NIGHTLY)
     Route: 048
  2. KLONOPIN [Concomitant]
     Active Substance: CLONAZEPAM
     Indication: ANXIETY
     Dosage: 2 MG, 1X/DAY
     Dates: start: 2005
  3. SYNTHROID [Concomitant]
     Active Substance: LEVOTHYROXINE SODIUM
     Indication: HYPOTHYROIDISM
     Dosage: 200 UG, DAILY (IN THE MORNING)
     Route: 048
  4. ATORVASTATIN [Concomitant]
     Active Substance: ATORVASTATIN
     Dosage: 20 MG, DAILY
     Route: 048
  5. PRISTIQ EXTENDED RELEASE [Suspect]
     Active Substance: DESVENLAFAXINE SUCCINATE
     Indication: DEPRESSION
     Dosage: 50 MG, DAILY
     Route: 048
  6. ACTIVELLA [Concomitant]
     Active Substance: ESTRADIOL\NORETHINDRONE ACETATE
     Indication: BLOOD OESTROGEN DECREASED
     Dosage: [ESTRADIOL 0.5 MG]/[NORETHINDRONE 1.0 MG], IN THE EVENING
     Route: 048
  7. POTASSIUM [Concomitant]
     Active Substance: POTASSIUM
     Dosage: 550 MG, DAILY
  8. SEROMOOD [Concomitant]
     Indication: SERUM SEROTONIN DECREASED
     Dosage: UNK
  9. MAGNESIUM [Concomitant]
     Active Substance: MAGNESIUM
     Dosage: 500 MG, 2X/DAY
  10. VITAMIN D3 [Concomitant]
     Active Substance: CHOLECALCIFEROL
     Dosage: 2000 IU, DAILY
     Route: 048
  11. GABA [Concomitant]
     Active Substance: .GAMMA.-AMINOBUTYRIC ACID
     Dosage: 425 MG, DAILY
     Route: 048
  12. VITAMIN B12 [Concomitant]
     Active Substance: CYANOCOBALAMIN
     Indication: SUPPLEMENTATION THERAPY
     Dosage: UNK
     Route: 048
  13. ASPIRIN BC POWDER [Concomitant]
     Indication: HEADACHE
     Dosage: 845 MG, 3X/DAY
     Route: 048
  14. FOLIC ACID. [Concomitant]
     Active Substance: FOLIC ACID
     Dosage: 1 MG, DAILY
     Route: 048

REACTIONS (13)
  - Weight increased [Not Recovered/Not Resolved]
  - Blood pressure fluctuation [Unknown]
  - Cerebrovascular accident [Unknown]
  - Speech disorder [Unknown]
  - Cerebrovascular accident [Unknown]
  - Seizure [Not Recovered/Not Resolved]
  - Hypersomnia [Not Recovered/Not Resolved]
  - Drug ineffective [Unknown]
  - Malaise [Unknown]
  - Asthenia [Unknown]
  - Paraesthesia [Unknown]
  - Seizure [Unknown]
  - Memory impairment [Unknown]

NARRATIVE: CASE EVENT DATE: 2014
